FAERS Safety Report 10017315 (Version 2)
Quarter: 2014Q1

REPORT INFORMATION
  Report Type: Spontaneous
  Country: IE (occurrence: IE)
  Receive Date: 20140318
  Receipt Date: 20140331
  Transmission Date: 20141002
  Serious: Yes (Hospitalization)
  Sender: FDA-Public Use
  Company Number: IE-JNJFOC-20140307634

PATIENT
  Age: 72 Year
  Sex: Female

DRUGS (6)
  1. XARELTO [Suspect]
     Indication: ATRIAL FIBRILLATION
     Route: 048
     Dates: start: 20140101, end: 20140301
  2. XARELTO [Suspect]
     Indication: CEREBROVASCULAR ACCIDENT PROPHYLAXIS
     Route: 048
     Dates: start: 20140101, end: 20140301
  3. MICARDIS PLUS [Concomitant]
     Dosage: 80/12.5 MG
     Route: 065
  4. ROSUVASTATIN [Concomitant]
     Route: 065
  5. ZANIDIP [Concomitant]
     Route: 065
  6. PARACETAMOL [Concomitant]
     Dosage: PRN
     Route: 065

REACTIONS (1)
  - Ischaemic stroke [Recovering/Resolving]
